FAERS Safety Report 8282107-4 (Version None)
Quarter: 2012Q2

REPORT INFORMATION
  Report Type: 
  Country: None (occurrence: None)
  Receive Date: 20120413
  Receipt Date: 20120406
  Transmission Date: 20120825
  Serious: Yes (Hospitalization)
  Sender: FDA-Public Use
  Company Number: US-AMGEN-USASP2012022042

PATIENT
  Age: 79 Year
  Sex: Female

DRUGS (1)
  1. ENBREL [Suspect]
     Indication: RHEUMATOID ARTHRITIS
     Dosage: 50 MG, QWK
     Dates: start: 20050601, end: 20120326

REACTIONS (6)
  - SNEEZING [None]
  - ARTHRALGIA [None]
  - JOINT EFFUSION [None]
  - RHEUMATOID ARTHRITIS [None]
  - SINUS CONGESTION [None]
  - COUGH [None]
